FAERS Safety Report 9619654 (Version 2)
Quarter: 2014Q1

REPORT INFORMATION
  Report Type: Spontaneous
  Country: FR (occurrence: FR)
  Receive Date: 20131014
  Receipt Date: 20140207
  Transmission Date: 20141002
  Serious: Yes (Other)
  Sender: FDA-Public Use
  Company Number: PHHY2013FR113851

PATIENT
  Age: 75 Year
  Sex: Female

DRUGS (5)
  1. AMANTADINE [Suspect]
     Dosage: 100 MG, BID
  2. ENTACAPONE-LEVODOPA-CARBIDOPA [Suspect]
     Indication: PARKINSON^S DISEASE
  3. SERTRALINE [Interacting]
     Indication: DEPRESSION
     Dosage: 50 MG, DAILY
  4. SERTRALINE [Interacting]
     Dosage: 100 MG, DAILY
  5. RASAGILINE [Interacting]
     Indication: PARKINSON^S DISEASE
     Dosage: 1 MG, DAILY

REACTIONS (15)
  - Serotonin syndrome [Recovered/Resolved]
  - Encephalopathy [Recovered/Resolved]
  - Agitation [Recovered/Resolved]
  - Delusion [Recovered/Resolved]
  - Altered state of consciousness [Recovered/Resolved]
  - Hyperhidrosis [Recovered/Resolved]
  - Hyperthermia [Recovered/Resolved]
  - Blood pressure abnormal [Recovered/Resolved]
  - Myoclonus [Recovered/Resolved]
  - Muscle rigidity [Recovered/Resolved]
  - Hyperreflexia [Recovered/Resolved]
  - Rhabdomyolysis [Recovered/Resolved]
  - Renal failure [Recovered/Resolved]
  - Dehydration [Recovered/Resolved]
  - Drug interaction [Unknown]
